FAERS Safety Report 13049628 (Version 1)
Quarter: 2016Q4

REPORT INFORMATION
  Report Type: Spontaneous
  Country: FR (occurrence: FR)
  Receive Date: 20161221
  Receipt Date: 20161221
  Transmission Date: 20170207
  Serious: Yes (Hospitalization, Other)
  Sender: FDA-Public Use
  Company Number: FR-PFIZER INC-2016583764

PATIENT
  Age: 83 Year
  Sex: Male

DRUGS (13)
  1. TAZOCILLINE [Suspect]
     Active Substance: PIPERACILLIN SODIUM\TAZOBACTAM SODIUM
     Indication: OSTEITIS
     Dosage: 4 G, 3X/DAY
     Route: 041
     Dates: start: 20160811, end: 20160812
  2. BISOCE [Concomitant]
     Active Substance: BISOPROLOL
     Indication: HYPERTENSION
     Dosage: 5 MG, 2X/DAY MORNING AND EVENING
     Route: 048
  3. EDUCTYL [Concomitant]
     Active Substance: POTASSIUM BITARTRATE\SODIUM BICARBONATE
     Dosage: 1 DF, 1X/DAY IN THE MORNING AS NEEDED
  4. DAFALGAN [Concomitant]
     Active Substance: ACETAMINOPHEN
     Indication: BONE PAIN
     Dosage: 1 G, 4X/DAY IF NEEDED
     Route: 048
  5. MIRTAZAPIN [Concomitant]
     Active Substance: MIRTAZAPINE
     Indication: DEPRESSION
     Dosage: 15 MG, 1X/DAY IN THE EVENING
     Route: 048
     Dates: start: 20160801
  6. BROMAZEPAM [Concomitant]
     Active Substance: BROMAZEPAM
     Indication: ANXIETY
     Dosage: 1.5 MG, 1X/DAY IN THE EVENING
     Route: 048
  7. LAROXYL [Concomitant]
     Active Substance: AMITRIPTYLINE
     Indication: NEURALGIA
     Dosage: 25 MG, 1X/DAY IN THE EVENING
     Route: 048
     Dates: start: 20160725
  8. OXYNORMORO [Concomitant]
     Active Substance: OXYCODONE
     Indication: BONE PAIN
     Dosage: 5 MG, AS NEEDED
     Route: 048
     Dates: start: 20160525
  9. TAZOCILLINE [Suspect]
     Active Substance: PIPERACILLIN SODIUM\TAZOBACTAM SODIUM
     Dosage: UNK
     Dates: start: 20160817, end: 20160819
  10. OXYCODONE [Concomitant]
     Active Substance: OXYCODONE
     Indication: BONE PAIN
     Dosage: 10 MG, 2X/DAY
     Route: 048
     Dates: start: 20160725
  11. AMLODIPINE [Concomitant]
     Active Substance: AMLODIPINE BESYLATE
     Indication: HYPERTENSION
     Dosage: 5 MG, 1X/DAY IN THE EVENING
     Route: 048
  12. MOVICOL /08437601/ [Concomitant]
     Dosage: 1 DF, 1X/DAY IN THE MORNING
  13. OFLOXACIN. [Concomitant]
     Active Substance: OFLOXACIN
     Indication: OSTEITIS
     Dosage: 200 MG, 2X/DAY
     Route: 048
     Dates: start: 20160811

REACTIONS (3)
  - Acute kidney injury [Recovering/Resolving]
  - Overdose [Unknown]
  - Pancreatitis acute [Recovered/Resolved]

NARRATIVE: CASE EVENT DATE: 20160812
